FAERS Safety Report 9358312 (Version 1)
Quarter: 2013Q2

REPORT INFORMATION
  Report Type: Spontaneous
  Country: FR (occurrence: FR)
  Receive Date: 20130620
  Receipt Date: 20130620
  Transmission Date: 20140414
  Serious: Yes (Hospitalization)
  Sender: FDA-Public Use
  Company Number: FR-SANOFI-AVENTIS-2013SA061139

PATIENT
  Age: 75 Year
  Sex: Female

DRUGS (19)
  1. LASILIX [Suspect]
     Indication: PRODUCT USED FOR UNKNOWN INDICATION
     Dosage: LONG STANDING MEDICATION
     Route: 048
  2. BURINEX [Suspect]
     Indication: PRODUCT USED FOR UNKNOWN INDICATION
     Route: 048
     Dates: start: 20130327, end: 20130515
  3. CORDARONE [Concomitant]
     Dosage: DOSE; ONE TABLET DAILY EXCEPT ON SATURDAY AND SUNDAY, STRENGTH; 200 MG
     Route: 048
  4. COUMADINE [Concomitant]
     Route: 048
  5. DIFFU K [Concomitant]
     Route: 048
  6. FLECAINE [Concomitant]
     Route: 048
  7. MIMPARA [Concomitant]
     Route: 048
  8. LEVOTHYROX [Concomitant]
     Route: 048
  9. SPASFON [Concomitant]
     Route: 048
  10. DOMPERIDONE [Concomitant]
  11. PARACETAMOL [Concomitant]
  12. SERESTA [Concomitant]
  13. LYRICA [Concomitant]
  14. OGASTORO [Concomitant]
  15. EDUCTYL [Concomitant]
  16. DUPHALAC /NET/ [Concomitant]
  17. DEBRIDAT [Concomitant]
  18. NORMACOL [Concomitant]
  19. SEDORRHOIDE [Concomitant]

REACTIONS (2)
  - Hypotension [Unknown]
  - Fall [Unknown]
